FAERS Safety Report 10939299 (Version 2)
Quarter: 2015Q2

REPORT INFORMATION
  Report Type: Spontaneous
  Country: US (occurrence: US)
  Receive Date: 20150322
  Receipt Date: 20150525
  Transmission Date: 20150821
  Serious: No
  Sender: FDA-Public Use
  Company Number: US-JNJFOC-20140708461

PATIENT
  Age: 64 Year
  Sex: Female
  Weight: 57.61 kg

DRUGS (5)
  1. OMEPRAZOLE. [Concomitant]
     Active Substance: OMEPRAZOLE
     Indication: GASTRIC DISORDER
     Dosage: ONCE DAILY
     Route: 048
     Dates: start: 201407
  2. METHYLPREDNISOLON [Concomitant]
     Active Substance: METHYLPREDNISOLONE
     Indication: FIBROMYALGIA
     Dosage: ONCE DAILY
     Route: 048
     Dates: start: 1999
  3. HYDROCODONE [Concomitant]
     Active Substance: HYDROCODONE
     Route: 065
  4. METHYLPREDNISOLON [Concomitant]
     Active Substance: METHYLPREDNISOLONE
     Indication: BACK PAIN
     Dosage: ONCE DAILY
     Route: 048
     Dates: start: 1999
  5. NUCYNTA [Suspect]
     Active Substance: TAPENTADOL HYDROCHLORIDE
     Indication: BACK PAIN
     Dosage: FOUR TIMES A DAY AS NEEDED
     Route: 048
     Dates: start: 20140710

REACTIONS (2)
  - Migraine [Recovered/Resolved]
  - Vomiting [Not Recovered/Not Resolved]

NARRATIVE: CASE EVENT DATE: 20140711
